FAERS Safety Report 12245362 (Version 1)
Quarter: 2016Q2

REPORT INFORMATION
  Report Type: Spontaneous
  Country: US (occurrence: None)
  Receive Date: 20160406
  Receipt Date: 20160406
  Transmission Date: 20160815
  Serious: Yes (Other)
  Sender: FDA-Public Use
  Company Number: None

PATIENT
  Age: 68 Year
  Sex: Female
  Weight: 77.11 kg

DRUGS (5)
  1. VENLAFAXINE [Concomitant]
     Active Substance: VENLAFAXINE HYDROCHLORIDE
  2. ESTROGEN [Concomitant]
     Active Substance: ESTRONE\SUS SCROFA OVARY
  3. ARIPIPRAZOLE, 2 MG CAMBER PHARMACY [Suspect]
     Active Substance: ARIPIPRAZOLE
     Indication: ADJUVANT THERAPY
     Route: 048
     Dates: start: 20160301, end: 20160312
  4. MULTI-VITAMIN [Concomitant]
     Active Substance: .ALPHA.-TOCOPHEROL ACETATE, DL-\ASCORBIC ACID\CYANOCOBALAMIN\FLUORIDE ION\FOLIC ACID\NIACIN\PYRIDOXINE\RIBOFLAVIN\THIAMINE\VITAMIN A\VITAMIN D
  5. CLONAZEPAM. [Concomitant]
     Active Substance: CLONAZEPAM

REACTIONS (16)
  - Dyspnoea [None]
  - Irritability [None]
  - Musculoskeletal stiffness [None]
  - Nervousness [None]
  - Chest discomfort [None]
  - Headache [None]
  - Asthenia [None]
  - Dizziness [None]
  - Speech disorder [None]
  - Restlessness [None]
  - Vision blurred [None]
  - Fatigue [None]
  - Somnolence [None]
  - Arthralgia [None]
  - Balance disorder [None]
  - Nightmare [None]

NARRATIVE: CASE EVENT DATE: 20160301
